FAERS Safety Report 4874463-1 (Version None)
Quarter: 2006Q1

REPORT INFORMATION
  Report Type: 
  Country: None (occurrence: None)
  Receive Date: 20060106
  Receipt Date: 20051226
  Transmission Date: 20060701
  Serious: Yes (Hospitalization)
  Sender: FDA-Public Use
  Company Number: FR-BRISTOL-MYERS SQUIBB COMPANY-13233705

PATIENT
  Age: 85 Year
  Sex: Male

DRUGS (4)
  1. FOZITEC TABS [Suspect]
     Route: 048
  2. FUROSEMIDE [Suspect]
     Dates: end: 20050930
  3. KARDEGIC [Suspect]
     Route: 048
     Dates: start: 20050902, end: 20050923
  4. PLAVIX [Suspect]
     Route: 048
     Dates: start: 20050902

REACTIONS (1)
  - CEREBRAL HAEMORRHAGE [None]
